FAERS Safety Report 10711269 (Version 1)
Quarter: 2015Q1

REPORT INFORMATION
  Report Type: Spontaneous
  Country: CA (occurrence: CA)
  Receive Date: 20150114
  Receipt Date: 20150114
  Transmission Date: 20150721
  Serious: Yes (Other)
  Sender: FDA-Public Use
  Company Number: CA-BAYER-2015-002623

PATIENT
  Age: 41 Year
  Sex: Female
  Weight: 61.23 kg

DRUGS (1)
  1. GADOVIST [Suspect]
     Active Substance: GADOBUTROL
     Dosage: 6 ML, UNK
     Route: 065

REACTIONS (1)
  - Throat irritation [Unknown]
